FAERS Safety Report 13142141 (Version 1)
Quarter: 2017Q1

REPORT INFORMATION
  Report Type: Spontaneous
  Country: US (occurrence: US)
  Receive Date: 20170123
  Receipt Date: 20170123
  Transmission Date: 20170428
  Serious: Yes (Other)
  Sender: FDA-Public Use
  Company Number: None

PATIENT
  Age: 45 Year
  Sex: Female

DRUGS (1)
  1. PARAGARD T 380A [Suspect]
     Active Substance: COPPER

REACTIONS (4)
  - Urticaria [None]
  - Vulvovaginal pruritus [None]
  - Fungal infection [None]
  - Dyspnoea [None]

NARRATIVE: CASE EVENT DATE: 20170101
